FAERS Safety Report 5107585-0 (Version None)
Quarter: 2006Q3

REPORT INFORMATION
  Report Type: 
  Country: None (occurrence: None)
  Receive Date: 20060914
  Receipt Date: 20060831
  Transmission Date: 20061208
  Serious: Yes (Hospitalization)
  Sender: FDA-Public Use
  Company Number: 229519

PATIENT
  Age: 54 Year
  Sex: Male

DRUGS (3)
  1. AVASTIN [Suspect]
     Indication: COLON CANCER
     Dosage: 575 MG, Q3W, INTRAVENOUS
     Route: 042
     Dates: start: 20051202
  2. OXALIPLATIN [Suspect]
     Indication: COLON CANCER
     Dosage: 170 MG, Q2W, INTRAVENOUS
     Route: 042
     Dates: start: 20051202
  3. FLUOROURACIL [Suspect]
     Indication: COLON CANCER
     Dosage: 200 MG, Q2W, INTRAVENOUS
     Route: 042
     Dates: start: 20051202

REACTIONS (3)
  - FIBRIN D DIMER INCREASED [None]
  - MITRAL VALVE INCOMPETENCE [None]
  - VASCULAR INSUFFICIENCY [None]
